FAERS Safety Report 8296613-X (Version None)
Quarter: 2012Q2

REPORT INFORMATION
  Report Type: 
  Country: None (occurrence: None)
  Receive Date: 20120418
  Receipt Date: 20120418
  Transmission Date: 20120825
  Serious: No
  Sender: FDA-Public Use
  Company Number: None

PATIENT
  Age: 57 Year
  Sex: Female
  Weight: 78.017 kg

DRUGS (1)
  1. ZYLET [Suspect]
     Indication: BLEPHARITIS

REACTIONS (1)
  - VITREOUS FLOATERS [None]
